FAERS Safety Report 6248959-4 (Version None)
Quarter: 2009Q2

REPORT INFORMATION
  Report Type: 
  Country: None (occurrence: None)
  Receive Date: 20090629
  Receipt Date: 20090604
  Transmission Date: 20091009
  Serious: No
  Sender: FDA-Public Use
  Company Number: US-TYCO HEALTHCARE/MALLINCKRODT-T200901175

PATIENT

DRUGS (2)
  1. TECHNETIUM TC 99M SESTAMIBI [Suspect]
     Indication: CARDIAC STRESS TEST
     Dosage: UNK
     Dates: start: 20090604, end: 20090604
  2. ULTRA-TECHNEKOW [Concomitant]
     Indication: CARDIAC STRESS TEST
     Dosage: UNK
     Dates: start: 20090604, end: 20090604

REACTIONS (1)
  - DRUG INEFFECTIVE [None]
